FAERS Safety Report 16233574 (Version 1)
Quarter: 2019Q2

REPORT INFORMATION
  Report Type: Spontaneous
  Country: US (occurrence: US)
  Receive Date: 20190319
  Receipt Date: 20190319
  Transmission Date: 20190711
  Serious: No
  Sender: FDA-Public Use
  Company Number: None

PATIENT
  Age: 59 Year
  Sex: Female
  Weight: 59.87 kg

DRUGS (8)
  1. YUVAFEM [Suspect]
     Active Substance: ESTRADIOL HEMIHYDRATE
     Indication: MENOPAUSAL SYMPTOMS
     Dosage: ?          QUANTITY:1 INSERT;?
     Route: 067
     Dates: start: 20190126
  2. ATORVASTATIN [Concomitant]
     Active Substance: ATORVASTATIN
  3. MAGNESIUM [Concomitant]
     Active Substance: MAGNESIUM
  4. FLUTICASONE. [Concomitant]
     Active Substance: FLUTICASONE
  5. SINGULAIR [Concomitant]
     Active Substance: MONTELUKAST SODIUM
  6. TRAVATAN-Z [Concomitant]
  7. VITAMIN D3 [Concomitant]
     Active Substance: CHOLECALCIFEROL
  8. VITAMON B12 [Concomitant]

REACTIONS (4)
  - Fatigue [None]
  - Vulvovaginal burning sensation [None]
  - Discomfort [None]
  - Product packaging difficult to open [None]

NARRATIVE: CASE EVENT DATE: 20190222
